FAERS Safety Report 16509271 (Version 2)
Quarter: 2020Q3

REPORT INFORMATION
  Report Type: Spontaneous
  Country: DE (occurrence: DE)
  Receive Date: 20190702
  Receipt Date: 20200707
  Transmission Date: 20201102
  Serious: Yes (Other)
  Sender: FDA-Public Use
  Company Number: DE-ACCORD-136063

PATIENT
  Age: 47 Year
  Sex: Female
  Weight: 65 kg

DRUGS (12)
  1. PROLUTEX [Concomitant]
     Active Substance: PROGESTERONE
     Indication: PROPHYLAXIS OF ABORTION
     Dosage: STRENGTH: 25 MG
     Route: 058
     Dates: start: 20180413, end: 20180419
  2. CLEXANE [Concomitant]
     Active Substance: ENOXAPARIN SODIUM
     Indication: PROPHYLAXIS OF ABORTION
     Dosage: UNK (1ST TRIMESTER?.4. ? 6. GESTATIONAL WEEK)
     Route: 058
     Dates: start: 20180328, end: 20180421
  3. FAMENITA [Concomitant]
     Active Substance: PROGESTERONE
     Indication: PROPHYLAXIS OF ABORTION
     Dosage: 600 MG/D (3X200)
     Route: 067
  4. L?THYROXINE [Concomitant]
     Active Substance: LEVOTHYROXINE
     Indication: HYPOTHYROIDISM
     Dosage: 100 MCG/D (BIS 50 MCG/D)(1ST TRIMESTER, 0?32.3 GESTATIONAL)
     Route: 048
     Dates: start: 20180310, end: 20181023
  5. PREDNISOLONE. [Concomitant]
     Active Substance: PREDNISOLONE
     Indication: INFERTILITY FEMALE
     Dosage: 15 MG/D (BIS 5)
     Route: 048
     Dates: start: 20180324, end: 20180424
  6. COLECALCIFEROL [Concomitant]
     Active Substance: CHOLECALCIFEROL
     Indication: VITAMIN D DEFICIENCY
     Dosage: 20000 I.E./WK (1ST TRIMESTER, 0?6.6 GESTATIONAL WEEK)
     Route: 048
  7. PROLUTON [Concomitant]
     Active Substance: HYDROXYPROGESTERONE CAPROATE
     Indication: PROPHYLAXIS OF ABORTION
     Dosage: 500 MG/D (ALLE 3 TAGE)
     Route: 030
     Dates: start: 20180328, end: 20180419
  8. XYLOMETAZOLINE [Concomitant]
     Active Substance: XYLOMETAZOLINE
     Indication: NASAL CONGESTION
     Dosage: UNK (3 RD TRIMESTER?28?39.3 GESTATIONAL WEEK
     Route: 045
  9. ASPIRIN. [Concomitant]
     Active Substance: ASPIRIN
     Indication: PROPHYLAXIS
     Dosage: 100 MG/D
     Route: 048
  10. QUETIAPINE. [Suspect]
     Active Substance: QUETIAPINE
     Indication: DEPRESSION
     Dosage: 225 MG MG/D (BIS 150 MG/D, 100?150 50?75
     Route: 048
     Dates: start: 20180310, end: 20181211
  11. VAXIGRIP [Concomitant]
     Active Substance: INFLUENZA VIRUS VACCINE
     Indication: IMMUNISATION
     Dosage: (3RD TRIMESTER?33?34 GESTATIONAL WEEK)
     Route: 030
  12. ACTRAPID [Concomitant]
     Active Substance: INSULIN HUMAN
     Indication: GESTATIONAL DIABETES
     Dosage: STRENGTH:  100 I.U./ML(3RD TRIMESTER)
     Route: 058

REACTIONS (3)
  - Exposure during pregnancy [Unknown]
  - Polyhydramnios [Recovered/Resolved]
  - Gestational diabetes [Recovered/Resolved]
